FAERS Safety Report 21440429 (Version 1)
Quarter: 2022Q4

REPORT INFORMATION
  Report Type: Spontaneous
  Country: US (occurrence: None)
  Receive Date: 20221009
  Receipt Date: 20221009
  Transmission Date: 20230112
  Serious: No
  Sender: FDA-Public Use
  Company Number: None

PATIENT
  Age: 67 Year
  Sex: Female
  Weight: 99 kg

DRUGS (9)
  1. ORENCIA [Suspect]
     Active Substance: ABATACEPT
     Indication: Rheumatoid arthritis
     Route: 042
     Dates: start: 20220607, end: 20220922
  2. ENTRESTO [Concomitant]
     Active Substance: SACUBITRIL\VALSARTAN
  3. SULFASALIZINE [Concomitant]
  4. PREDNISONE [Concomitant]
     Active Substance: PREDNISONE
  5. LASIX [Concomitant]
     Active Substance: FUROSEMIDE
  6. LEFLUNIMIDE [Concomitant]
  7. KEPPRA [Concomitant]
     Active Substance: LEVETIRACETAM
  8. LAMICTAL [Concomitant]
     Active Substance: LAMOTRIGINE
  9. IBUPROFEN [Concomitant]
     Active Substance: IBUPROFEN

REACTIONS (7)
  - Peripheral swelling [None]
  - Back pain [None]
  - Pain in extremity [None]
  - Musculoskeletal pain [None]
  - Mobility decreased [None]
  - Decreased appetite [None]
  - Blood pressure increased [None]
